FAERS Safety Report 5802541-9 (Version None)
Quarter: 2008Q3

REPORT INFORMATION
  Report Type: 
  Country: None (occurrence: None)
  Receive Date: 20080701
  Receipt Date: 20080319
  Transmission Date: 20090109
  Serious: Yes (Other)
  Sender: FDA-Public Use
  Company Number: 08-000489

PATIENT
  Age: 45 Year
  Sex: Female
  Weight: 90.7 kg

DRUGS (7)
  1. ESTROSTEP FE [Suspect]
     Dosage: 20-30-35/1000 UG, QD, ORAL
     Route: 048
     Dates: start: 20060901, end: 20070701
  2. FEMCON FE [Suspect]
     Indication: UTERINE HAEMORRHAGE
     Dosage: 0.4MG/35MCG UG, QD, ORAL
     Route: 048
     Dates: start: 20070701, end: 20080101
  3. DESYREL [Concomitant]
  4. SYNTHROID [Concomitant]
  5. LITHIUM CARBONATE [Concomitant]
  6. XANAX [Concomitant]
  7. FLONASE [Concomitant]

REACTIONS (3)
  - DRUG DOSE OMISSION [None]
  - MENORRHAGIA [None]
  - METRORRHAGIA [None]
